FAERS Safety Report 5535787-8 (Version None)
Quarter: 2007Q4

REPORT INFORMATION
  Report Type: 
  Country: None (occurrence: None)
  Receive Date: 20071206
  Receipt Date: 20071127
  Transmission Date: 20080405
  Serious: Yes (Hospitalization, Disabling, Other)
  Sender: FDA-Public Use
  Company Number: US-MERCK-0709USA01704

PATIENT
  Age: 46 Year
  Sex: Male

DRUGS (11)
  1. FOSAMAX [Suspect]
     Indication: OSTEOPENIA
     Route: 048
     Dates: start: 20000915
  2. FOSAMAX [Suspect]
     Route: 048
     Dates: end: 20061026
  3. CELEBREX [Concomitant]
     Indication: NECK PAIN
     Route: 065
     Dates: start: 19990910
  4. GEMFIBROZIL [Concomitant]
     Indication: BLOOD CHOLESTEROL
     Route: 065
     Dates: start: 20000311, end: 20001231
  5. ALBUTEROL [Concomitant]
     Indication: DYSPNOEA
     Route: 065
     Dates: start: 20000904
  6. CLINDAMYCIN [Concomitant]
     Route: 065
     Dates: start: 20000904
  7. PREVACID [Concomitant]
     Indication: GASTROOESOPHAGEAL REFLUX DISEASE
     Route: 065
     Dates: start: 20001203
  8. CYCLOBENZAPRINE HYDROCHLORIDE [Concomitant]
     Indication: HYPOTONIA
     Route: 065
     Dates: start: 20001024
  9. ROXICET [Concomitant]
     Indication: PAIN
     Route: 065
     Dates: start: 19971022
  10. HYTRIN [Concomitant]
     Indication: PROSTATOMEGALY
     Route: 065
     Dates: start: 19970922
  11. [THERAPY UNSPECIFIED] [Concomitant]
     Route: 065

REACTIONS (13)
  - ABSCESS NECK [None]
  - ANORECTAL DISORDER [None]
  - ANXIETY [None]
  - BODY TEMPERATURE [None]
  - CONFUSIONAL STATE [None]
  - DEPRESSION [None]
  - DISABILITY [None]
  - EMOTIONAL DISTRESS [None]
  - JAW FRACTURE [None]
  - LOCAL SWELLING [None]
  - OBSTRUCTIVE AIRWAYS DISORDER [None]
  - OSTEOMYELITIS [None]
  - OSTEONECROSIS [None]
